FAERS Safety Report 4933561-4 (Version None)
Quarter: 2006Q1

REPORT INFORMATION
  Report Type: 
  Country: None (occurrence: None)
  Receive Date: 20060306
  Receipt Date: 20060228
  Transmission Date: 20060701
  Serious: Yes (Death, Hospitalization)
  Sender: FDA-Public Use
  Company Number: GB-JNJFOC-20060101376

PATIENT
  Sex: Male

DRUGS (6)
  1. REMICADE [Suspect]
     Route: 042
  2. REMICADE [Suspect]
     Route: 042
  3. REMICADE [Suspect]
     Indication: CROHN'S DISEASE
     Dosage: 2 INFUSIONS
     Route: 042
  4. MADOPAR [Concomitant]
     Route: 065
  5. MADOPAR [Concomitant]
     Route: 065
  6. FYBOGEL [Concomitant]
     Route: 065

REACTIONS (1)
  - DISSEMINATED TUBERCULOSIS [None]
